FAERS Safety Report 7822757-X (Version None)
Quarter: 2011Q4

REPORT INFORMATION
  Report Type: 
  Country: None (occurrence: None)
  Receive Date: 20111018
  Receipt Date: 20111013
  Transmission Date: 20120403
  Serious: Yes (Other)
  Sender: FDA-Public Use
  Company Number: US-AMGEN-USASP2011053117

PATIENT
  Sex: Female

DRUGS (2)
  1. ENBREL [Suspect]
     Indication: RHEUMATOID ARTHRITIS
     Dosage: 25 MG, Q2WK
  2. PREDNISONE [Concomitant]
     Dosage: UNK

REACTIONS (3)
  - CHOLELITHIASIS [None]
  - MALAISE [None]
  - THERAPEUTIC RESPONSE DECREASED [None]
